FAERS Safety Report 8306662-0 (Version None)
Quarter: 2012Q1

REPORT INFORMATION
  Report Type: 
  Country: None (occurrence: None)
  Receive Date: 20120326
  Receipt Date: 20110629
  Transmission Date: 20120608
  Serious: Yes (Other)
  Sender: FDA-Public Use
  Company Number: PHHY2011US34438

PATIENT
  Age: 75 Year
  Sex: Male
  Weight: 82.5 kg

DRUGS (1)
  1. TASIGNA [Suspect]
     Indication: CHRONIC MYELOID LEUKAEMIA
     Dosage: 300 MG, BID,ORAL
     Route: 048
     Dates: start: 20110209, end: 20110306

REACTIONS (12)
  - MALAISE [None]
  - LEUKOCYTOSIS [None]
  - DRUG INTOLERANCE [None]
  - THROMBOCYTOPENIA [None]
  - LOCAL SWELLING [None]
  - ERYTHEMA [None]
  - ANAEMIA [None]
  - PANCYTOPENIA [None]
  - PRURITUS [None]
  - INSOMNIA [None]
  - LEUKOPENIA [None]
  - SWELLING FACE [None]
